FAERS Safety Report 10042795 (Version 1)
Quarter: 2014Q1

REPORT INFORMATION
  Report Type: Spontaneous
  Country: US (occurrence: US)
  Receive Date: 20140327
  Receipt Date: 20140327
  Transmission Date: 20141002
  Serious: No
  Sender: FDA-Public Use
  Company Number: US-B.I. PHARMACEUTICALS,INC./RIDGEFIELD-2014-BI-12738BP

PATIENT
  Sex: Female

DRUGS (7)
  1. SPIRIVA [Suspect]
     Indication: ASTHMA
     Dosage: 18 MCG
     Route: 055
     Dates: start: 2013
  2. NASONEX [Concomitant]
     Indication: HYPERSENSITIVITY
     Dosage: FORMULATION: NASAL SPRAY
     Route: 045
  3. NASONEX [Concomitant]
     Indication: UPPER-AIRWAY COUGH SYNDROME
  4. LASIX [Concomitant]
     Indication: LOCAL SWELLING
     Dosage: 10 MG
     Route: 048
  5. POTASSIUM [Concomitant]
     Indication: MUSCLE SPASMS
     Dosage: 60 MEQ
     Route: 048
  6. MAGNESIUM [Concomitant]
     Indication: MUSCLE SPASMS
     Route: 065
  7. INDAPAMIDE [Concomitant]
     Indication: HYPERTENSION
     Dosage: 12.5 MG
     Route: 048

REACTIONS (3)
  - Dry mouth [Not Recovered/Not Resolved]
  - Off label use [Unknown]
  - Product quality issue [Unknown]
